FAERS Safety Report 5498780-X (Version None)
Quarter: 2007Q4

REPORT INFORMATION
  Report Type: 
  Country: None (occurrence: None)
  Receive Date: 20071026
  Receipt Date: 20070717
  Transmission Date: 20080405
  Serious: No
  Sender: FDA-Public Use
  Company Number: A0664604A

PATIENT
  Age: 73 Year
  Sex: Female

DRUGS (9)
  1. ADVAIR DISKUS 100/50 [Suspect]
     Indication: ASTHMA
     Route: 055
     Dates: start: 20060101
  2. LIPITOR [Concomitant]
  3. COMBIVENT [Concomitant]
  4. SINGULAIR [Concomitant]
  5. BLOOD PRESSURE MEDICATION [Concomitant]
  6. COZAAR [Concomitant]
  7. CLONIDINE [Concomitant]
  8. ALLEGRA [Concomitant]
  9. OMEGA 3 FATTY ACIDS [Concomitant]

REACTIONS (1)
  - WHITE BLOOD CELL COUNT DECREASED [None]
